FAERS Safety Report 9494868 (Version 1)
Quarter: 2013Q3

REPORT INFORMATION
  Report Type: Spontaneous
  Country: US (occurrence: US)
  Receive Date: 20130903
  Receipt Date: 20130903
  Transmission Date: 20140515
  Serious: No
  Sender: FDA-Public Use
  Company Number: US-009507513-1309USA000686

PATIENT
  Sex: Female

DRUGS (1)
  1. COSOPT PF [Suspect]
     Dosage: 1 DROP IN EACH EYE TWICE DAILY
     Route: 047

REACTIONS (2)
  - Discomfort [Not Recovered/Not Resolved]
  - Product quality issue [Unknown]
